FAERS Safety Report 7769527-9 (Version None)
Quarter: 2011Q3

REPORT INFORMATION
  Report Type: 
  Country: None (occurrence: None)
  Receive Date: 20110922
  Receipt Date: 20110118
  Transmission Date: 20111222
  Serious: No
  Sender: FDA-Public Use
  Company Number: US-ASTRAZENECA-2011SE03150

PATIENT
  Age: 506 Month
  Sex: Female
  Weight: 77.1 kg

DRUGS (9)
  1. AMITRIPTYLINE HCL [Concomitant]
  2. DIAZEPAM [Concomitant]
  3. XANAX [Concomitant]
  4. SEROQUEL [Suspect]
     Route: 048
     Dates: end: 20110101
  5. SEROQUEL [Suspect]
     Indication: BIPOLAR II DISORDER
     Route: 048
     Dates: start: 20070101
  6. LITHIUM CARBONATE [Concomitant]
  7. ZOLOFT [Concomitant]
  8. SEROQUEL [Suspect]
     Route: 048
     Dates: start: 20110101
  9. TOPAMAX [Concomitant]

REACTIONS (4)
  - FEELING ABNORMAL [None]
  - WRONG TECHNIQUE IN DRUG USAGE PROCESS [None]
  - DEPRESSION [None]
  - INSOMNIA [None]
